FAERS Safety Report 9093362 (Version 1)
Quarter: 2013Q1

REPORT INFORMATION
  Report Type: Spontaneous
  Country: US (occurrence: US)
  Receive Date: 20130218
  Receipt Date: 20130218
  Transmission Date: 20140127
  Serious: No
  Sender: FDA-Public Use
  Company Number: US-009507513-1302USA005641

PATIENT
  Age: 53 Year
  Sex: Male
  Weight: 111.57 kg

DRUGS (5)
  1. VICTRELIS [Suspect]
     Dosage: 800 MG, TID
  2. RIBAPAK [Suspect]
     Dosage: 1200, QD
  3. PEGASYS [Suspect]
  4. AMOXICILLIN [Concomitant]
  5. ZOLOFT [Concomitant]

REACTIONS (3)
  - Rash [Unknown]
  - Tooth abscess [Unknown]
  - Headache [Unknown]
